FAERS Safety Report 5755474-0 (Version None)
Quarter: 2008Q2

REPORT INFORMATION
  Report Type: 
  Country: None (occurrence: None)
  Receive Date: 20080527
  Receipt Date: 20080430
  Transmission Date: 20081010
  Serious: No
  Sender: FDA-Public Use
  Company Number: CFNTY-237 (2)

PATIENT
  Age: 44 Year
  Sex: Female

DRUGS (2)
  1. CEFDITORE PIVOXIL 300 MG [Suspect]
     Indication: INFECTION PROPHYLAXIS
     Dosage: 300 MG, PO
     Route: 048
     Dates: start: 20080418
  2. LOXONIN (LOXOPROFEN SODIUM HYDRATE) [Concomitant]

REACTIONS (3)
  - DISCOMFORT [None]
  - EYELID OEDEMA [None]
  - TINNITUS [None]
